FAERS Safety Report 6010880-4 (Version None)
Quarter: 2008Q4

REPORT INFORMATION
  Report Type: 
  Country: None (occurrence: None)
  Receive Date: 20081216
  Receipt Date: 20081201
  Transmission Date: 20090506
  Serious: Yes (Death)
  Sender: FDA-Public Use
  Company Number: KV200800904

PATIENT
  Age: 77 Year
  Sex: Male
  Weight: 84.4 kg

DRUGS (2)
  1. ISOSORBIDE MONONITRATE [Suspect]
     Indication: HEART VALVE REPLACEMENT
     Dosage: ORAL
     Route: 048
  2. NUMEROUS UNSPECIFIED MEDICATIONS [Concomitant]

REACTIONS (2)
  - PRODUCT QUALITY ISSUE [None]
  - RENAL FAILURE [None]
